FAERS Safety Report 10937192 (Version 1)
Quarter: 2015Q1

REPORT INFORMATION
  Report Type: Spontaneous
  Country: US (occurrence: None)
  Receive Date: 20150212
  Receipt Date: 20150212
  Transmission Date: 20150721
  Serious: No
  Sender: FDA-Public Use
  Company Number: TPA2011A00275

PATIENT
  Age: 79 Year
  Sex: Male
  Weight: 102.06 kg

DRUGS (10)
  1. BYETTA (DRUG USED IN DIABETES) [Concomitant]
  2. METFORMIN [Concomitant]
     Active Substance: METFORMIN HYDROCHLORIDE
  3. COREG CR (CARVEDILOL) [Concomitant]
  4. TAMSULOSIN (TAMSULOSIN) [Concomitant]
     Active Substance: TAMSULOSIN
  5. COLCRYS [Suspect]
     Active Substance: COLCHICINE
     Indication: PROPHYLAXIS
     Route: 048
     Dates: start: 2001, end: 2011
  6. LIPITOR [Concomitant]
     Active Substance: ATORVASTATIN CALCIUM
  7. ASPIRIN (ACETYLSALICYLIC ACID) [Concomitant]
     Active Substance: ASPIRIN
  8. ULORIC [Suspect]
     Active Substance: FEBUXOSTAT
     Indication: GOUT
     Route: 048
     Dates: start: 20110113
  9. COLCRYS [Suspect]
     Active Substance: COLCHICINE
     Indication: GOUT
     Route: 048
     Dates: start: 2001, end: 2011
  10. TRIBENZOR (ANTIHYPERTENSIVES) [Concomitant]

REACTIONS (6)
  - Oedema peripheral [None]
  - Blood pressure increased [None]
  - Joint swelling [None]
  - Diarrhoea [None]
  - Gout [None]
  - Arthralgia [None]

NARRATIVE: CASE EVENT DATE: 201102
